FAERS Safety Report 9806568 (Version 1)
Quarter: 2014Q1

REPORT INFORMATION
  Report Type: Spontaneous
  Country: US (occurrence: US)
  Receive Date: 20140109
  Receipt Date: 20140109
  Transmission Date: 20141002
  Serious: Yes (Death, Hospitalization)
  Sender: FDA-Public Use
  Company Number: US-BAYER-2014-003971

PATIENT
  Age: 66 Year
  Sex: Female

DRUGS (3)
  1. DEXTROMETHORPHAN (ROMILAR, XINLI) +/- GUAIFENESIN [Suspect]
     Route: 048
  2. FLUOXETINE [Suspect]
     Route: 048
  3. MELATONIN [Suspect]
     Route: 048

REACTIONS (1)
  - Toxicity to various agents [Fatal]
